FAERS Safety Report 6392203-4 (Version None)
Quarter: 2009Q4

REPORT INFORMATION
  Report Type: 
  Country: None (occurrence: None)
  Receive Date: 20091007
  Receipt Date: 20091001
  Transmission Date: 20100525
  Serious: Yes (Hospitalization)
  Sender: FDA-Public Use
  Company Number: DE-AVENTIS-200912468DE

PATIENT
  Age: 56 Year
  Sex: Female
  Weight: 79 kg

DRUGS (11)
  1. DOCETAXEL [Suspect]
     Route: 042
     Dates: start: 20090903, end: 20090903
  2. CYCLOPHOSPHAMIDE [Suspect]
     Route: 042
     Dates: start: 20090903, end: 20090903
  3. PARIET [Concomitant]
     Dates: start: 20090903, end: 20090910
  4. MESNA [Concomitant]
     Indication: PROPHYLAXIS
     Dates: start: 20090903, end: 20090903
  5. MESNA [Concomitant]
     Dates: start: 20090904, end: 20090904
  6. ZOFRAN [Concomitant]
     Indication: PROPHYLAXIS
     Dates: start: 20090903, end: 20090903
  7. ZOFRAN [Concomitant]
     Dates: start: 20090904, end: 20090904
  8. FORTECORTIN                        /00016001/ [Concomitant]
     Indication: DRUG USE FOR UNKNOWN INDICATION
     Dosage: DOSE: CCORDING TO PROTOCOL
     Dates: start: 20090722, end: 20090904
  9. FORTECORTIN                        /00016001/ [Concomitant]
     Dates: start: 20090905, end: 20090905
  10. FORTECORTIN                        /00016001/ [Concomitant]
     Dates: start: 20090906, end: 20090906
  11. FORTECORTIN                        /00016001/ [Concomitant]
     Dates: start: 20090907, end: 20090907

REACTIONS (1)
  - PERIPHERAL ISCHAEMIA [None]
